FAERS Safety Report 14907362 (Version 1)
Quarter: 2018Q2

REPORT INFORMATION
  Report Type: Spontaneous
  Country: DE (occurrence: DE)
  Receive Date: 20180517
  Receipt Date: 20180517
  Transmission Date: 20180711
  Serious: Yes (Death, Hospitalization)
  Sender: FDA-Public Use
  Company Number: DE-WEST-WARD PHARMACEUTICALS CORP.-DE-H14001-18-03908

PATIENT
  Age: 49 Year
  Sex: Female
  Weight: 58 kg

DRUGS (31)
  1. BEVACIZUMAB. [Suspect]
     Active Substance: BEVACIZUMAB
     Dosage: LAST DOSE PRIOR TO SAE ON 14/JUN/2013
     Route: 065
  2. ZOFRAN [Concomitant]
     Active Substance: ONDANSETRON HYDROCHLORIDE
     Indication: VOMITING
     Dosage: ON THE DAY OF CHEMOTHERAPY
     Route: 048
  3. RANITIDIN [Concomitant]
     Active Substance: RANITIDINE HYDROCHLORIDE
     Indication: PROPHYLAXIS AGAINST GASTROINTESTINAL ULCER
     Dosage: ON THE DAY OF CHEMOTHERAPY
     Route: 042
  4. PACLITAXEL. [Suspect]
     Active Substance: PACLITAXEL
     Indication: BREAST CANCER
     Route: 065
  5. FERINJECT [Concomitant]
     Active Substance: FERRIC CARBOXYMALTOSE
     Indication: ANAEMIA
     Route: 042
  6. PACLITAXEL. [Suspect]
     Active Substance: PACLITAXEL
     Route: 065
  7. CARBOPLATIN. [Suspect]
     Active Substance: CARBOPLATIN
     Indication: BREAST CANCER
     Route: 065
  8. CARBOPLATIN. [Suspect]
     Active Substance: CARBOPLATIN
     Route: 065
  9. CARBOPLATIN. [Suspect]
     Active Substance: CARBOPLATIN
     Route: 065
  10. PACLITAXEL. [Suspect]
     Active Substance: PACLITAXEL
     Route: 065
  11. NEULASTA [Concomitant]
     Active Substance: PEGFILGRASTIM
     Indication: PRODUCT USED FOR UNKNOWN INDICATION
     Dosage: ONE DAY AFTER CHEMOTHERAPY
     Route: 058
  12. CARBOPLATIN. [Suspect]
     Active Substance: CARBOPLATIN
     Route: 065
  13. PACLITAXEL. [Suspect]
     Active Substance: PACLITAXEL
     Route: 065
  14. BEVACIZUMAB. [Suspect]
     Active Substance: BEVACIZUMAB
     Indication: BREAST CANCER
     Route: 065
  15. ONDANSETRON [Concomitant]
     Active Substance: ONDANSETRON
     Indication: VOMITING
     Dosage: ()
  16. NEULASTA [Concomitant]
     Active Substance: PEGFILGRASTIM
     Dosage: ONE DAY AFTER CHEMOTHERAPY
     Route: 058
  17. PACLITAXEL. [Suspect]
     Active Substance: PACLITAXEL
     Dosage: LAST DOSE PRIOR TO SAE ON 14/JUN/2013
     Route: 065
  18. BEVACIZUMAB. [Suspect]
     Active Substance: BEVACIZUMAB
     Route: 065
  19. BEVACIZUMAB. [Suspect]
     Active Substance: BEVACIZUMAB
     Route: 065
  20. IVEMEND [Concomitant]
     Active Substance: FOSAPREPITANT DIMEGLUMINE
     Indication: NAUSEA
     Dosage: ON THE DAY OF CHEMOTHERAPY
     Route: 042
  21. ARANESP [Concomitant]
     Active Substance: DARBEPOETIN ALFA
     Indication: PRODUCT USED FOR UNKNOWN INDICATION
     Route: 058
  22. RATIOGRASTIM [Concomitant]
     Active Substance: FILGRASTIM
     Indication: PRODUCT USED FOR UNKNOWN INDICATION
     Route: 058
  23. DEXAMETHASON [Concomitant]
     Active Substance: DEXAMETHASONE
     Indication: HYPERSENSITIVITY
     Dosage: ONE DAY BEFORE CHEMOTHERAPY
     Route: 042
  24. CARBOPLATIN. [Suspect]
     Active Substance: CARBOPLATIN
     Route: 065
  25. ONDANSETRON [Concomitant]
     Active Substance: ONDANSETRON
     Indication: NAUSEA
     Dosage: ON THE DAY OF CHEMOTHERAPY
     Route: 042
  26. IVEMEND [Concomitant]
     Active Substance: FOSAPREPITANT DIMEGLUMINE
     Indication: VOMITING
     Dosage: ()
  27. DEXAMETHASON [Concomitant]
     Active Substance: DEXAMETHASONE
     Indication: NAUSEA
     Dosage: ONE DAY BEFORE CHEMOTHERAPY
     Route: 042
  28. TAVEGIL [Concomitant]
     Active Substance: CLEMASTINE FUMARATE
     Indication: NAUSEA
     Dosage: ()
  29. CARBOPLATIN. [Suspect]
     Active Substance: CARBOPLATIN
     Dosage: LAST DOSE PRIOR TO SAE ON 14/JUN/2013
     Route: 065
     Dates: start: 20130301, end: 20130614
  30. PACLITAXEL. [Suspect]
     Active Substance: PACLITAXEL
     Route: 065
  31. TAVEGIL [Concomitant]
     Active Substance: CLEMASTINE FUMARATE
     Indication: HYPERSENSITIVITY
     Route: 042

REACTIONS (11)
  - Urosepsis [Recovered/Resolved]
  - Sepsis [Recovered/Resolved]
  - Febrile neutropenia [Recovered/Resolved]
  - Hydronephrosis [Recovered/Resolved]
  - Leukopenia [Unknown]
  - Bacteraemia [Recovered/Resolved]
  - Anaemia [Unknown]
  - Ileus [Fatal]
  - Sepsis [Unknown]
  - Vomiting [Unknown]
  - General physical health deterioration [Recovered/Resolved]

NARRATIVE: CASE EVENT DATE: 20130325
